FAERS Safety Report 7784234-4 (Version None)
Quarter: 2011Q3

REPORT INFORMATION
  Report Type: 
  Country: None (occurrence: None)
  Receive Date: 20110928
  Receipt Date: 20110920
  Transmission Date: 20111222
  Serious: Yes (Hospitalization, Disabling, Other)
  Sender: FDA-Public Use
  Company Number: JP-CEPHALON-2011002594

PATIENT
  Sex: Male

DRUGS (9)
  1. TREANDA [Suspect]
     Route: 042
     Dates: start: 20110714
  2. TREANDA [Suspect]
     Indication: B-CELL LYMPHOMA
     Route: 042
     Dates: start: 20110421, end: 20110422
  3. DEXAMETHASONE [Suspect]
     Indication: ALLERGY PROPHYLAXIS
     Dates: start: 20110421, end: 20110715
  4. DEXAMETHASONE [Suspect]
     Route: 048
     Dates: start: 20110716
  5. SULFAMETHOXAZOLE AND TRIMETHOPRIM [Concomitant]
     Dates: start: 20110421
  6. ASPIRIN [Concomitant]
     Dates: start: 20110430
  7. ALLOPURINOL [Concomitant]
     Dates: start: 20110421, end: 20110716
  8. TREANDA [Suspect]
     Route: 042
     Dates: start: 20110616, end: 20110617
  9. FAMOTIDINE [Concomitant]
     Dates: start: 20110418, end: 20110716

REACTIONS (4)
  - LARGE INTESTINE PERFORATION [None]
  - INFECTIOUS PERITONITIS [None]
  - NEUTROPHIL COUNT DECREASED [None]
  - PLATELET COUNT DECREASED [None]
